FAERS Safety Report 9069506 (Version 3)
Quarter: 2013Q1

REPORT INFORMATION
  Report Type: Spontaneous
  Country: US (occurrence: US)
  Receive Date: 20130215
  Receipt Date: 20130324
  Transmission Date: 20140127
  Serious: Yes (Hospitalization, Other)
  Sender: FDA-Public Use
  Company Number: CHPA2013US002834

PATIENT
  Age: 3 None
  Sex: Male

DRUGS (3)
  1. TRIAMINIC COLD AND ALLERGY [Suspect]
     Indication: RHINORRHOEA
     Dosage: UNK, BEFORE BEDTIME AND BEFORE MORNING
     Route: 048
  2. THERAFLU DAYTIME SEVERE COLD WARMING SYRUP [Suspect]
     Indication: RHINORRHOEA
     Dosage: UNK, UNK
  3. THERAFLU NIGHTTIME SEVERE COLD WARMING SYRUP [Suspect]
     Indication: RHINORRHOEA
     Dosage: UNK, UNK
     Route: 048

REACTIONS (9)
  - Convulsion [Recovered/Resolved]
  - Pyrexia [Recovered/Resolved]
  - Pharyngitis [Recovered/Resolved]
  - Aphonia [Recovered/Resolved]
  - Rhinorrhoea [Not Recovered/Not Resolved]
  - Nasal congestion [Not Recovered/Not Resolved]
  - Overdose [Unknown]
  - Incorrect dose administered [Unknown]
  - Drug ineffective [Unknown]
